FAERS Safety Report 6215387-7 (Version None)
Quarter: 2009Q2

REPORT INFORMATION
  Report Type: 
  Country: None (occurrence: None)
  Receive Date: 20090603
  Receipt Date: 20090526
  Transmission Date: 20091009
  Serious: Yes (Other)
  Sender: FDA-Public Use
  Company Number: 2009S1008152

PATIENT
  Age: 21 Year
  Sex: Male
  Weight: 81.5 kg

DRUGS (2)
  1. AMNESTEEM [Suspect]
     Indication: ACNE
     Dosage: ORAL
     Route: 048
     Dates: start: 20090413
  2. AMNESTEEM [Suspect]
     Indication: ACNE
     Dosage: 40 MG; DAILY; ORAL
     Route: 048
     Dates: end: 20090507

REACTIONS (2)
  - SUICIDAL IDEATION [None]
  - WITHDRAWAL SYNDROME [None]
